FAERS Safety Report 7623445-5 (Version None)
Quarter: 2011Q3

REPORT INFORMATION
  Report Type: 
  Country: None (occurrence: None)
  Receive Date: 20110720
  Receipt Date: 20110711
  Transmission Date: 20111222
  Serious: Yes (Hospitalization, Other)
  Sender: FDA-Public Use
  Company Number: PHHY2011US63394

PATIENT
  Age: 82 Year
  Sex: Male

DRUGS (2)
  1. WARFARIN SODIUM [Suspect]
     Dosage: 4 MG, UNK
  2. ISOTRETINOIN [Interacting]
     Indication: PROPHYLAXIS
     Dosage: 10 MG, UNK

REACTIONS (17)
  - JUGULAR VEIN DISTENSION [None]
  - PRURITUS [None]
  - DYSPNOEA [None]
  - IRRITABILITY [None]
  - RALES [None]
  - OEDEMA [None]
  - PERSONALITY CHANGE [None]
  - OEDEMA PERIPHERAL [None]
  - LIP DRY [None]
  - PENILE OEDEMA [None]
  - CARDIAC FAILURE [None]
  - WEIGHT INCREASED [None]
  - EPISTAXIS [None]
  - DRY EYE [None]
  - SCROTAL OEDEMA [None]
  - INTERNATIONAL NORMALISED RATIO INCREASED [None]
  - DISTURBANCE IN ATTENTION [None]
